FAERS Safety Report 9677627 (Version 2)
Quarter: 2013Q4

REPORT INFORMATION
  Report Type: Spontaneous
  Country: CA (occurrence: CA)
  Receive Date: 20131108
  Receipt Date: 20131223
  Transmission Date: 20140711
  Serious: Yes (Hospitalization)
  Sender: FDA-Public Use
  Company Number: CA-NOVOPROD-391786

PATIENT
  Age: 79 Year
  Sex: Male

DRUGS (6)
  1. LEVEMIR PENFILL [Suspect]
     Indication: DIABETES MELLITUS
     Dosage: 24 TO 28 U/DAY
     Route: 065
     Dates: start: 2011
  2. SYNTHROID [Concomitant]
  3. INHIBACE                           /00498401/ [Concomitant]
  4. ZOPICLONE [Concomitant]
  5. LOZIDE                             /00340101/ [Concomitant]
  6. B12                                /00056201/ [Concomitant]

REACTIONS (1)
  - Rash generalised [Unknown]
